FAERS Safety Report 6782289-7 (Version None)
Quarter: 2010Q2

REPORT INFORMATION
  Report Type: 
  Country: None (occurrence: None)
  Receive Date: 20100602
  Receipt Date: 20100602
  Transmission Date: 20101027
  Serious: Yes (Hospitalization)
  Sender: FDA-Public Use
  Company Number: A-NJ2010-35638

PATIENT
  Age: 73 Year
  Sex: Male

DRUGS (2)
  1. TRACLEER [Suspect]
     Indication: PULMONARY ARTERIAL HYPERTENSION
     Dosage: 125MG, BID, ORAL; 62.5 MG, BID, ORAL
     Route: 048
     Dates: start: 20100217, end: 20100101
  2. TRACLEER [Suspect]
     Indication: PULMONARY ARTERIAL HYPERTENSION
     Dosage: 125MG, BID, ORAL; 62.5 MG, BID, ORAL
     Route: 048
     Dates: start: 20100101

REACTIONS (5)
  - CARDIAC FAILURE CONGESTIVE [None]
  - CHRONIC OBSTRUCTIVE PULMONARY DISEASE [None]
  - DYSPNOEA [None]
  - OFF LABEL USE [None]
  - PNEUMONIA [None]
